FAERS Safety Report 8283161-6 (Version None)
Quarter: 2012Q2

REPORT INFORMATION
  Report Type: 
  Country: None (occurrence: None)
  Receive Date: 20120413
  Receipt Date: 20120405
  Transmission Date: 20120825
  Serious: Yes (Disabling)
  Sender: FDA-Public Use
  Company Number: DE-GLAXOSMITHKLINE-D0074974A

PATIENT
  Sex: Male
  Weight: 92 kg

DRUGS (6)
  1. TAMSULOSIN HCL [Concomitant]
     Dosage: .4MG PER DAY
     Route: 048
  2. TORSEMIDE [Concomitant]
     Dosage: 5MG PER DAY
     Route: 065
  3. RAMIPRIL [Concomitant]
     Dosage: 5MG PER DAY
     Route: 048
  4. PRIMIDONE [Concomitant]
     Indication: EPILEPSY
     Dosage: 250MG THREE TIMES PER DAY
     Route: 048
  5. TOLTERODINE TARTRATE [Concomitant]
     Dosage: 5MG PER DAY
     Route: 065
  6. LAMICTAL [Suspect]
     Indication: EPILEPSY
     Route: 048
     Dates: start: 20050101

REACTIONS (2)
  - TUBULOINTERSTITIAL NEPHRITIS [None]
  - RENAL FAILURE [None]
